FAERS Safety Report 15833140 (Version 6)
Quarter: 2020Q3

REPORT INFORMATION
  Report Type: Report from Study
  Country: NL (occurrence: NL)
  Receive Date: 20190116
  Receipt Date: 20190211
  Transmission Date: 20201104
  Serious: Yes (Death, Life-Threatening, Hospitalization)
  Sender: FDA-Public Use
  Company Number: NL-JNJFOC-20190118031

PATIENT
  Age: 8 Decade
  Sex: Male

DRUGS (4)
  1. IXAZOMIB [Suspect]
     Active Substance: IXAZOMIB
     Indication: PLASMA CELL MYELOMA
     Route: 048
     Dates: start: 20181102, end: 20181207
  2. DEXAMETHASONE. [Suspect]
     Active Substance: DEXAMETHASONE
     Indication: PLASMA CELL MYELOMA
     Route: 048
     Dates: start: 20181102, end: 20181207
  3. DARATUMUMAB [Suspect]
     Active Substance: DARATUMUMAB
     Route: 042
  4. DARATUMUMAB [Suspect]
     Active Substance: DARATUMUMAB
     Indication: PLASMA CELL MYELOMA
     Route: 042
     Dates: start: 20181102, end: 20181207

REACTIONS (9)
  - Back pain [Fatal]
  - Atrial fibrillation [Unknown]
  - Respiratory failure [Unknown]
  - Cough [Unknown]
  - Lung infiltration [Unknown]
  - Myocardial ischaemia [Not Recovered/Not Resolved]
  - Dyspnoea [Unknown]
  - Pneumonitis [Fatal]
  - Pain [Unknown]

NARRATIVE: CASE EVENT DATE: 201812
